FAERS Safety Report 4553285-5 (Version None)
Quarter: 2005Q1

REPORT INFORMATION
  Report Type: 
  Country: None (occurrence: None)
  Receive Date: 20050112
  Receipt Date: 20050103
  Transmission Date: 20050727
  Serious: Yes (Hospitalization)
  Sender: FDA-Public Use
  Company Number: S05-USA-00001-01

PATIENT
  Age: 84 Year
  Sex: Male

DRUGS (14)
  1. NAMENDA [Suspect]
     Indication: DEMENTIA ALZHEIMER'S TYPE
     Dosage: 10 MG QD PO
     Route: 048
     Dates: start: 20041226, end: 20041231
  2. NAMENDA [Suspect]
     Indication: DEMENTIA ALZHEIMER'S TYPE
     Dosage: 5 MG QD PO
     Route: 048
     Dates: start: 20041219, end: 20041225
  3. CELEXA [Concomitant]
  4. ARICEPT [Concomitant]
  5. LISINOPRIL [Concomitant]
  6. ACTOS [Concomitant]
  7. UNKNOWN HEART MEDICATION [Concomitant]
  8. PRAVACHOL [Concomitant]
  9. RANITIDINE [Concomitant]
  10. ATENOLOL [Concomitant]
  11. ASPIRIN [Concomitant]
  12. VITAMIN C [Concomitant]
  13. VITAMIN E [Concomitant]
  14. CVS-12 [Concomitant]

REACTIONS (3)
  - DIZZINESS [None]
  - LOSS OF CONSCIOUSNESS [None]
  - NIGHTMARE [None]
